FAERS Safety Report 7726437-0 (Version None)
Quarter: 2011Q3

REPORT INFORMATION
  Report Type: 
  Country: None (occurrence: None)
  Receive Date: 20110902
  Receipt Date: 20110830
  Transmission Date: 20111222
  Serious: Yes (Other)
  Sender: FDA-Public Use
  Company Number: US-PFIZER INC-2011203094

PATIENT
  Sex: Male

DRUGS (1)
  1. CHANTIX [Suspect]
     Dosage: UNK
     Dates: start: 20080101

REACTIONS (12)
  - EMOTIONAL DISORDER [None]
  - DEPRESSION [None]
  - INSOMNIA [None]
  - ABNORMAL BEHAVIOUR [None]
  - IRRITABILITY [None]
  - ANGER [None]
  - NIGHTMARE [None]
  - THINKING ABNORMAL [None]
  - ANHEDONIA [None]
  - INJURY [None]
  - ANXIETY [None]
  - FRUSTRATION [None]
